FAERS Safety Report 5132986-4 (Version None)
Quarter: 2006Q4

REPORT INFORMATION
  Report Type: 
  Country: None (occurrence: None)
  Receive Date: 20061017
  Receipt Date: 20061004
  Transmission Date: 20070319
  Serious: No
  Sender: FDA-Public Use
  Company Number: SPV1-2006-01099

PATIENT
  Sex: 0

DRUGS (2)
  1. MIDODRINE (MIDODRINE) TABLET [Suspect]
     Indication: ORTHOSTATIC HYPOTENSION
  2. FLUDROCORTISONE ACETATE [Suspect]
     Indication: ORTHOSTATIC HYPOTENSION

REACTIONS (6)
  - ANXIETY [None]
  - CARDIAC FAILURE [None]
  - CEREBROVASCULAR ACCIDENT [None]
  - CONSTIPATION [None]
  - ECZEMA [None]
  - SYNCOPE [None]
